FAERS Safety Report 4724235-3 (Version None)
Quarter: 2005Q3

REPORT INFORMATION
  Report Type: 
  Country: None (occurrence: None)
  Receive Date: 20050726
  Receipt Date: 20050711
  Transmission Date: 20060218
  Serious: Yes (Hospitalization, Other)
  Sender: FDA-Public Use
  Company Number: GB-JNJFOC-20050602568

PATIENT
  Sex: Female
  Weight: 73 kg

DRUGS (7)
  1. REMICADE [Suspect]
     Indication: RHEUMATOID ARTHRITIS
     Route: 042
  2. GTN [Concomitant]
     Route: 060
  3. METHOTREXATE [Concomitant]
     Route: 058
  4. ASPIRIN [Concomitant]
     Route: 048
  5. NABUMETONE [Concomitant]
     Route: 048
  6. FOLIC ACID [Concomitant]
     Route: 065
  7. CYCLOSPORINE [Concomitant]
     Route: 065

REACTIONS (1)
  - INFUSION RELATED REACTION [None]
